FAERS Safety Report 25979624 (Version 1)
Quarter: 2025Q4

REPORT INFORMATION
  Report Type: Spontaneous
  Country: US (occurrence: US)
  Receive Date: 20251030
  Receipt Date: 20251030
  Transmission Date: 20260117
  Serious: Yes (Hospitalization)
  Sender: MYLAN
  Company Number: US-MYLANLABS-2025M1091906

PATIENT
  Age: 6 Decade
  Sex: Male

DRUGS (10)
  1. LEVETIRACETAM [Suspect]
     Active Substance: LEVETIRACETAM
     Indication: Epileptic encephalopathy
     Dosage: 1500 MILLIGRAM, BID
  2. LEVETIRACETAM [Suspect]
     Active Substance: LEVETIRACETAM
     Indication: Alcoholic encephalopathy
  3. OXCARBAZEPINE [Suspect]
     Active Substance: OXCARBAZEPINE
     Indication: Epileptic encephalopathy
     Dosage: UNK
  4. OXCARBAZEPINE [Suspect]
     Active Substance: OXCARBAZEPINE
     Indication: Alcoholic encephalopathy
  5. LACOSAMIDE [Suspect]
     Active Substance: LACOSAMIDE
     Indication: Epileptic encephalopathy
     Dosage: 100 MILLIGRAM, BID
  6. LACOSAMIDE [Suspect]
     Active Substance: LACOSAMIDE
     Indication: Alcoholic encephalopathy
  7. LEVETIRACETAM [Concomitant]
     Active Substance: LEVETIRACETAM
     Indication: Epileptic encephalopathy
     Dosage: 1000 MILLIGRAM
  8. LEVETIRACETAM [Concomitant]
     Active Substance: LEVETIRACETAM
     Indication: Alcoholic encephalopathy
  9. LORAZEPAM [Concomitant]
     Active Substance: LORAZEPAM
     Indication: Epileptic encephalopathy
     Dosage: 2 MILLIGRAM
  10. LORAZEPAM [Concomitant]
     Active Substance: LORAZEPAM
     Indication: Alcoholic encephalopathy

REACTIONS (2)
  - Hyponatraemia [Unknown]
  - Treatment noncompliance [Unknown]
